FAERS Safety Report 9855370 (Version 4)
Quarter: 2014Q1

REPORT INFORMATION
  Report Type: Spontaneous
  Country: US (occurrence: US)
  Receive Date: 20140130
  Receipt Date: 20140227
  Transmission Date: 20141002
  Serious: Yes (Other)
  Sender: FDA-Public Use
  Company Number: US-JNJFOC-20140114885

PATIENT
  Sex: Male

DRUGS (2)
  1. XARELTO [Suspect]
     Indication: CEREBROVASCULAR ACCIDENT PROPHYLAXIS
     Route: 048
  2. XARELTO [Suspect]
     Indication: ATRIAL FIBRILLATION
     Route: 048

REACTIONS (4)
  - Post procedural haemorrhage [Recovered/Resolved]
  - Haemoglobin decreased [Unknown]
  - Large intestine polyp [Recovered/Resolved]
  - Inappropriate schedule of drug administration [Unknown]
